FAERS Safety Report 9016386 (Version 1)
Quarter: 2013Q1

REPORT INFORMATION
  Report Type: Report from Study
  Country: US (occurrence: US)
  Receive Date: 20130116
  Receipt Date: 20130116
  Transmission Date: 20140127
  Serious: Yes (Hospitalization, Other)
  Sender: FDA-Public Use
  Company Number: US-UCBSA-074435

PATIENT
  Age: 52 Year
  Sex: Female
  Weight: 97 kg

DRUGS (15)
  1. CIMZIA [Suspect]
     Indication: CROHN^S DISEASE
     Route: 058
     Dates: start: 20100308, end: 20100405
  2. CIMZIA [Suspect]
     Indication: CROHN^S DISEASE
     Route: 058
     Dates: start: 20100503, end: 20120903
  3. VITAMIN B12 [Concomitant]
     Indication: VITAMIN SUPPLEMENTATION
     Route: 030
     Dates: start: 2007
  4. ESTRADIOL [Concomitant]
     Indication: OESTROGEN REPLACEMENT THERAPY
     Dosage: DAILY DOSE: 1.5 MG
     Dates: start: 2003
  5. LORAZEPAM [Concomitant]
     Indication: ANXIETY
     Dates: start: 2005
  6. PAROXETINE [Concomitant]
     Indication: DEPRESSION
     Dosage: DAILY DOSE: 60 MG
     Dates: start: 2005
  7. RANITIDINE [Concomitant]
     Indication: GASTROOESOPHAGEAL REFLUX DISEASE
     Dates: start: 2004
  8. VENTOLIN [Concomitant]
     Indication: UPPER RESPIRATORY TRACT INFECTION
     Dosage: 90 MCG/ACT 2 PUFFS QID, PRN
     Dates: start: 2004
  9. ZOLPIDEM [Concomitant]
     Indication: INSOMNIA
     Dosage: 10 MG HS, AS NECESSARY
     Dates: start: 2005
  10. CLARITIN D [Concomitant]
     Indication: SEASONAL ALLERGY
     Dosage: 5-120 MG
  11. OXYCODONE-ACETAMINOPHEN [Concomitant]
     Indication: PAIN
     Dosage: 1-2 Q4H
     Route: 048
     Dates: start: 20120613
  12. ZANAFLEX [Concomitant]
     Indication: MUSCLE RELAXANT THERAPY
     Route: 048
     Dates: start: 2012
  13. SYMBICORT [Concomitant]
     Indication: ASTHMA
     Dosage: 160/4.5 MCG INHALER 2 PUFFS TID
     Route: 055
     Dates: start: 2012
  14. NAPROXEN [Concomitant]
  15. DIFLUCAN [Concomitant]
     Indication: ORAL CANDIDIASIS
     Dosage: 100 MG DAILY FOR 10 DAYS
     Route: 048

REACTIONS (1)
  - Incision site abscess [Recovered/Resolved]
